FAERS Safety Report 7660594-X (Version None)
Quarter: 2011Q3

REPORT INFORMATION
  Report Type: 
  Country: None (occurrence: None)
  Receive Date: 20110805
  Receipt Date: 20101101
  Transmission Date: 20111222
  Serious: No
  Sender: FDA-Public Use
  Company Number: US-ABBOTT-10P-163-0682781-00

PATIENT
  Sex: Female
  Weight: 104.42 kg

DRUGS (4)
  1. FISH OIL [Concomitant]
     Indication: PRODUCT USED FOR UNKNOWN INDICATION
  2. NIASPAN [Suspect]
     Indication: UNEVALUABLE EVENT
     Dosage: AT BEDTIME
     Dates: start: 20101030
  3. HYZAAR [Concomitant]
     Indication: PRODUCT USED FOR UNKNOWN INDICATION
  4. NIASPAN [Suspect]
     Indication: HIGH DENSITY LIPOPROTEIN DECREASED

REACTIONS (4)
  - ERYTHEMA [None]
  - RASH MACULAR [None]
  - SKIN BURNING SENSATION [None]
  - PALPITATIONS [None]
